FAERS Safety Report 4351141-9 (Version None)
Quarter: 2004Q2

REPORT INFORMATION
  Report Type: 
  Country: None (occurrence: None)
  Receive Date: 20040427
  Receipt Date: 20040416
  Transmission Date: 20050107
  Serious: Yes (Life-Threatening, Hospitalization)
  Sender: FDA-Public Use
  Company Number: US069691

PATIENT
  Age: 47 Year
  Sex: Male

DRUGS (2)
  1. ETANERCEPT [Suspect]
     Indication: PSORIASIS
     Dosage: 50 MG, 2 IN 1 WEEKS, SC
     Route: 058
     Dates: start: 20040128, end: 20040301
  2. LEVOTHYROXINE SODIUM [Concomitant]

REACTIONS (7)
  - BETA HAEMOLYTIC STREPTOCOCCAL INFECTION [None]
  - DIALYSIS [None]
  - MYOSITIS [None]
  - NECROTISING FASCIITIS STREPTOCOCCAL [None]
  - PHLEBITIS [None]
  - RENAL FAILURE [None]
  - SEPTIC SHOCK [None]
